APPROVED DRUG PRODUCT: METRONIDAZOLE
Active Ingredient: METRONIDAZOLE
Strength: 0.75%
Dosage Form/Route: CREAM;TOPICAL
Application: A077549 | Product #001 | TE Code: AB
Applicant: COSETTE PHARMACEUTICALS INC
Approved: Dec 19, 2007 | RLD: No | RS: No | Type: RX